FAERS Safety Report 17467004 (Version 1)
Quarter: 2020Q1

REPORT INFORMATION
  Report Type: Other
  Country: GB (occurrence: GB)
  Receive Date: 20200227
  Receipt Date: 20200227
  Transmission Date: 20200409
  Serious: Yes (Hospitalization)
  Sender: FDA-Public Use
  Company Number: GB-STRIDES ARCOLAB LIMITED-2020SP001944

PATIENT
  Age: 7 Year
  Sex: Female

DRUGS (1)
  1. ETHOSUXIMIDE. [Suspect]
     Active Substance: ETHOSUXIMIDE
     Indication: EPILEPSY
     Dosage: 375 MILLIGRAM, QD, 375 MILLIGRAM, QD (250MG/ML. 125 MG AND 250 MG TEA TIME)
     Route: 048
     Dates: start: 20190911, end: 20191202

REACTIONS (1)
  - Ascites [Recovered/Resolved]
